FAERS Safety Report 5592676-0 (Version None)
Quarter: 2007Q4

REPORT INFORMATION
  Report Type: 
  Country: None (occurrence: None)
  Receive Date: 20071218
  Receipt Date: 20061114
  Transmission Date: 20080405
  Serious: Yes (Hospitalization)
  Sender: FDA-Public Use
  Company Number: 2006139892

PATIENT
  Age: 56 Year
  Sex: Male
  Weight: 77.1 kg

DRUGS (2)
  1. BEXTRA [Suspect]
     Indication: BACK PAIN
     Dosage: 10 MG (10 MG,1 IN 1 D)
     Dates: start: 20030520
  2. BEXTRA [Suspect]
     Indication: NECK PAIN
     Dosage: 10 MG (10 MG,1 IN 1 D)
     Dates: start: 20030520

REACTIONS (1)
  - MYOCARDIAL INFARCTION [None]
